FAERS Safety Report 18959080 (Version 2)
Quarter: 2021Q2

REPORT INFORMATION
  Report Type: Report from Study
  Country: MX (occurrence: MX)
  Receive Date: 20210302
  Receipt Date: 20210503
  Transmission Date: 20210717
  Serious: No
  Sender: FDA-Public Use
  Company Number: NVSC2021MX043217

PATIENT
  Sex: Male
  Weight: 54 kg

DRUGS (1)
  1. DIOVAN [Suspect]
     Active Substance: VALSARTAN
     Indication: BLOOD PRESSURE MANAGEMENT
     Dosage: 2 DF, QD
     Route: 065
     Dates: start: 20210104, end: 202101

REACTIONS (4)
  - Tremor [Unknown]
  - Drug ineffective [Unknown]
  - COVID-19 [Unknown]
  - Blood pressure increased [Unknown]
